FAERS Safety Report 19938313 (Version 1)
Quarter: 2021Q4

REPORT INFORMATION
  Report Type: Spontaneous
  Country: US (occurrence: US)
  Receive Date: 20211011
  Receipt Date: 20211011
  Transmission Date: 20220303
  Serious: No
  Sender: FDA-Public Use
  Company Number: US-STRIDES ARCOLAB LIMITED-2020SP016617

PATIENT
  Age: 71 Year
  Sex: Female

DRUGS (1)
  1. BUSPIRONE HYDROCHLORIDE [Suspect]
     Active Substance: BUSPIRONE HYDROCHLORIDE
     Indication: Abdominal pain upper
     Dosage: 10 MILLIGRAM, BID
     Route: 065

REACTIONS (1)
  - Off label use [Unknown]
